FAERS Safety Report 8051470-1 (Version None)
Quarter: 2012Q1

REPORT INFORMATION
  Report Type: 
  Country: None (occurrence: None)
  Receive Date: 20120117
  Receipt Date: 20120110
  Transmission Date: 20120608
  Serious: Yes (Other)
  Sender: FDA-Public Use
  Company Number: US-ASTRAZENECA-2012SE02251

PATIENT
  Age: 46 Year
  Sex: Male

DRUGS (1)
  1. SEROQUEL XR [Suspect]
     Route: 048

REACTIONS (3)
  - INTERVERTEBRAL DISC PROTRUSION [None]
  - SPINAL FRACTURE [None]
  - INTERVERTEBRAL DISC DEGENERATION [None]
